FAERS Safety Report 25572652 (Version 2)
Quarter: 2025Q3

REPORT INFORMATION
  Report Type: Spontaneous
  Country: US (occurrence: US)
  Receive Date: 20250717
  Receipt Date: 20250723
  Transmission Date: 20251020
  Serious: Yes (Life-Threatening, Hospitalization, Other)
  Sender: SANOFI AVENTIS
  Company Number: US-DialogSolutions-SAAVPROD-PI799275-C1

PATIENT
  Age: 21 Year
  Sex: Male

DRUGS (7)
  1. TAMSULOSIN HYDROCHLORIDE [Suspect]
     Active Substance: TAMSULOSIN HYDROCHLORIDE
     Indication: Suicide attempt
     Route: 048
  2. LISINOPRIL [Suspect]
     Active Substance: LISINOPRIL
     Indication: Suicide attempt
     Route: 048
  3. AMLODIPINE [Suspect]
     Active Substance: AMLODIPINE BESYLATE
     Indication: Suicide attempt
     Route: 048
  4. SERTRALINE HYDROCHLORIDE [Suspect]
     Active Substance: SERTRALINE HYDROCHLORIDE
     Indication: Suicide attempt
     Route: 048
  5. SERTRALINE HYDROCHLORIDE [Suspect]
     Active Substance: SERTRALINE HYDROCHLORIDE
     Indication: Depression
  6. METHYLENE BLUE [Suspect]
     Active Substance: METHYLENE BLUE
     Indication: Distributive shock
  7. METHYLENE BLUE [Suspect]
     Active Substance: METHYLENE BLUE
     Dosage: 24.5 ML, QH (24.5 ML/HR)

REACTIONS (13)
  - Serotonin syndrome [Recovered/Resolved]
  - Hyperthermia [Recovered/Resolved]
  - Hyperreflexia [Recovered/Resolved]
  - Clonus [Recovered/Resolved]
  - Mydriasis [Recovered/Resolved]
  - Intentional overdose [Recovered/Resolved]
  - Distributive shock [Recovered/Resolved]
  - Hypotension [Recovered/Resolved]
  - Lactic acidosis [Recovered/Resolved]
  - Respiratory failure [Recovered/Resolved]
  - Acute kidney injury [Recovered/Resolved]
  - Ileus [Recovered/Resolved]
  - Hyponatraemia [Recovered/Resolved]
